FAERS Safety Report 8218607 (Version 3)
Quarter: 2013Q2

REPORT INFORMATION
  Report Type: Report from Study
  Country: None (occurrence: NL)
  Receive Date: 20111101
  Receipt Date: 20130624
  Transmission Date: 20140414
  Serious: Yes (Hospitalization, Other)
  Sender: FDA-Public Use
  Company Number: NL-BAXTER-2011BH033617

PATIENT
  Age: 13 Year
  Sex: Male
  Weight: 54 kg

DRUGS (89)
  1. NAVELBINE [Suspect]
     Indication: NEOPLASM MALIGNANT
     Route: 065
     Dates: start: 20110211
  2. NAVELBINE [Suspect]
     Route: 065
     Dates: start: 20110218
  3. NAVELBINE [Suspect]
     Route: 065
     Dates: start: 20110225
  4. NAVELBINE [Suspect]
     Route: 065
     Dates: start: 20110311
  5. NAVELBINE [Suspect]
     Route: 065
     Dates: start: 20110318
  6. NAVELBINE [Suspect]
     Route: 065
     Dates: start: 20110325
  7. NAVELBINE [Suspect]
     Route: 065
     Dates: start: 20110408
  8. NAVELBINE [Suspect]
     Route: 065
     Dates: start: 20110422
  9. NAVELBINE [Suspect]
     Route: 065
     Dates: start: 20110506
  10. NAVELBINE [Suspect]
     Route: 065
     Dates: start: 20110513
  11. NAVELBINE [Suspect]
     Route: 065
     Dates: start: 20110520
  12. NAVELBINE [Suspect]
     Route: 065
     Dates: start: 20110805
  13. NAVELBINE [Suspect]
     Route: 065
     Dates: start: 20110812
  14. CYCLOPHOSPHAMIDE TABLETS 50 MG [Suspect]
     Indication: SARCOMA METASTATIC
     Route: 048
     Dates: start: 20100924, end: 20100930
  15. CYCLOPHOSPHAMIDE TABLETS 50 MG [Suspect]
     Route: 048
     Dates: start: 20101015, end: 20101021
  16. CYCLOPHOSPHAMIDE TABLETS 50 MG [Suspect]
     Route: 048
     Dates: start: 20110408, end: 20110423
  17. IFOSFAMIDE 40 MG/ML SOLUTION FOR INFUSION [Suspect]
     Indication: SARCOMA METASTATIC
     Route: 065
  18. BEVACIZUMAB [Suspect]
     Indication: SARCOMA METASTATIC
     Route: 042
     Dates: start: 20100308
  19. BEVACIZUMAB [Suspect]
     Route: 042
     Dates: start: 20100422
  20. BEVACIZUMAB [Suspect]
     Route: 042
     Dates: start: 20100408
  21. BEVACIZUMAB [Suspect]
     Route: 065
     Dates: start: 20110211
  22. BEVACIZUMAB [Suspect]
     Route: 065
     Dates: start: 20110225
  23. BEVACIZUMAB [Suspect]
     Route: 065
     Dates: start: 20110311
  24. BEVACIZUMAB [Suspect]
     Route: 065
     Dates: start: 20110325
  25. BEVACIZUMAB [Suspect]
     Route: 065
     Dates: start: 20110408
  26. BEVACIZUMAB [Suspect]
     Route: 065
     Dates: start: 20110422
  27. BEVACIZUMAB [Suspect]
     Route: 065
     Dates: start: 20110520
  28. BEVACIZUMAB [Suspect]
     Route: 065
     Dates: start: 20110812
  29. DACTINOMYCIN [Suspect]
     Indication: SARCOMA METASTATIC
     Route: 042
     Dates: end: 20100716
  30. DOXORUBICIN [Suspect]
     Indication: SARCOMA METASTATIC
     Route: 065
     Dates: end: 20100513
  31. VINCRISTINE SULFATE [Suspect]
     Indication: SARCOMA METASTATIC
     Route: 042
     Dates: end: 20100903
  32. RASBURICASE [Concomitant]
     Indication: PRODUCT USED FOR UNKNOWN INDICATION
     Route: 042
     Dates: start: 20100212, end: 20100215
  33. PAMIDRONATE DISODIUM [Concomitant]
     Indication: PRODUCT USED FOR UNKNOWN INDICATION
     Route: 042
     Dates: start: 20100213, end: 20100216
  34. PAMIDRONATE DISODIUM [Concomitant]
     Route: 042
     Dates: start: 20100303, end: 20100304
  35. PARACETAMOL [Concomitant]
     Indication: PRODUCT USED FOR UNKNOWN INDICATION
     Route: 048
     Dates: start: 20100213, end: 20100213
  36. PARACETAMOL [Concomitant]
     Route: 048
     Dates: start: 20100319, end: 20100319
  37. PARACETAMOL [Concomitant]
     Route: 048
     Dates: start: 20100324, end: 20100324
  38. PARACETAMOL [Concomitant]
     Route: 048
     Dates: start: 20100325, end: 20100325
  39. PARACETAMOL [Concomitant]
     Route: 048
     Dates: start: 20100328, end: 20100331
  40. PARACETAMOL [Concomitant]
     Route: 048
     Dates: start: 20100331, end: 20100407
  41. PARACETAMOL [Concomitant]
     Route: 048
     Dates: start: 20100412, end: 20100414
  42. PARACETAMOL [Concomitant]
     Route: 048
     Dates: start: 20100414, end: 20100422
  43. PARACETAMOL [Concomitant]
     Route: 048
     Dates: start: 20100422, end: 20100422
  44. FUROSEMIDE [Concomitant]
     Indication: PRODUCT USED FOR UNKNOWN INDICATION
     Route: 042
     Dates: start: 20100213, end: 20100214
  45. FUROSEMIDE [Concomitant]
     Route: 042
     Dates: start: 20100216, end: 20100217
  46. GRANISETRON [Concomitant]
     Indication: PRODUCT USED FOR UNKNOWN INDICATION
     Route: 042
     Dates: start: 20100213, end: 20100214
  47. GRANISETRON [Concomitant]
     Route: 042
     Dates: start: 20100214, end: 20100217
  48. GRANISETRON [Concomitant]
     Route: 042
     Dates: start: 20100303, end: 20100310
  49. GRANISETRON [Concomitant]
     Route: 042
     Dates: start: 20100318, end: 20100403
  50. GRANISETRON [Concomitant]
     Route: 042
     Dates: start: 20100403, end: 20100407
  51. CALCIUM CARBONATE [Concomitant]
     Indication: PRODUCT USED FOR UNKNOWN INDICATION
     Route: 048
     Dates: start: 20100215, end: 20100216
  52. CALCIUM CARBONATE [Concomitant]
     Route: 048
     Dates: start: 20100216, end: 20100218
  53. CALCIUM CARBONATE [Concomitant]
     Route: 048
     Dates: start: 20100218, end: 20100219
  54. ALLOPURINOL [Concomitant]
     Indication: PRODUCT USED FOR UNKNOWN INDICATION
     Route: 048
     Dates: start: 20100215, end: 20100217
  55. MACROGOL [Concomitant]
     Indication: PRODUCT USED FOR UNKNOWN INDICATION
     Route: 048
     Dates: start: 20100308, end: 20100312
  56. MACROGOL [Concomitant]
     Route: 048
     Dates: start: 20100312, end: 20100316
  57. MACROGOL [Concomitant]
     Route: 048
     Dates: start: 20100319, end: 20100320
  58. MACROGOL [Concomitant]
     Route: 048
     Dates: start: 20100320, end: 20100322
  59. MACROGOL [Concomitant]
     Route: 048
     Dates: start: 20100322, end: 20100327
  60. MACROGOL [Concomitant]
     Route: 048
     Dates: start: 20100329, end: 20100407
  61. MACROGOL [Concomitant]
     Route: 048
     Dates: start: 20100415, end: 20100424
  62. MACROGOL [Concomitant]
     Route: 048
     Dates: start: 20100424
  63. MACROGOL [Concomitant]
     Route: 048
     Dates: start: 20100501, end: 20130504
  64. MACROGOL [Concomitant]
     Route: 048
     Dates: start: 20100512, end: 20100514
  65. CLEMASTINE [Concomitant]
     Indication: PRODUCT USED FOR UNKNOWN INDICATION
     Route: 042
     Dates: start: 20100308, end: 20100308
  66. CLEMASTINE [Concomitant]
     Route: 042
     Dates: start: 20100308, end: 20100312
  67. HYDROCORTISONE [Concomitant]
     Indication: PRODUCT USED FOR UNKNOWN INDICATION
     Route: 042
     Dates: start: 20100308, end: 20100312
  68. DEXAMETHASONE [Concomitant]
     Indication: PRODUCT USED FOR UNKNOWN INDICATION
     Route: 051
     Dates: start: 20100309, end: 20100314
  69. DEXAMETHASONE [Concomitant]
     Route: 065
     Dates: start: 20100403, end: 20100404
  70. DEXAMETHASONE [Concomitant]
     Route: 065
     Dates: start: 20100404, end: 20100405
  71. DEXAMETHASONE [Concomitant]
     Route: 065
     Dates: start: 20100405, end: 20100407
  72. DEXAMETHASONE [Concomitant]
     Route: 065
     Dates: start: 20100513, end: 20100514
  73. DEXAMETHASONE [Concomitant]
     Route: 065
     Dates: start: 20100604, end: 20100605
  74. APREPITANT [Concomitant]
     Indication: PRODUCT USED FOR UNKNOWN INDICATION
     Route: 048
     Dates: start: 20100309, end: 20100310
  75. APREPITANT [Concomitant]
     Route: 048
     Dates: start: 20100301, end: 20100312
  76. APREPITANT [Concomitant]
     Route: 048
     Dates: start: 20100401, end: 20100402
  77. APREPITANT [Concomitant]
     Route: 048
     Dates: start: 20100402, end: 20100404
  78. APREPITANT [Concomitant]
     Route: 048
     Dates: start: 20100404, end: 20100407
  79. APREPITANT [Concomitant]
     Route: 048
     Dates: start: 20100513, end: 20100513
  80. APREPITANT [Concomitant]
     Route: 048
     Dates: start: 20100513, end: 20100514
  81. APREPITANT [Concomitant]
     Route: 048
     Dates: start: 20100604, end: 20100605
  82. APREPITANT [Concomitant]
     Route: 048
     Dates: start: 20100625, end: 20100626
  83. APREPITANT [Concomitant]
     Route: 048
     Dates: start: 20100626, end: 20100627
  84. GRANISETRON [Concomitant]
     Indication: PRODUCT USED FOR UNKNOWN INDICATION
     Route: 048
     Dates: start: 20100310, end: 20100316
  85. CODEINE [Concomitant]
     Indication: PRODUCT USED FOR UNKNOWN INDICATION
     Route: 048
     Dates: start: 20100311, end: 20100312
  86. PARACETAMOL [Concomitant]
     Indication: PRODUCT USED FOR UNKNOWN INDICATION
     Route: 054
     Dates: start: 20100213, end: 20100215
  87. PARACETAMOL [Concomitant]
     Route: 054
     Dates: start: 20100215, end: 20100219
  88. PARACETAMOL [Concomitant]
     Route: 054
     Dates: start: 20100303, end: 20100316
  89. PARACETAMOL [Concomitant]
     Route: 054
     Dates: start: 20100320, end: 20100324

REACTIONS (6)
  - Febrile neutropenia [Recovered/Resolved]
  - Oral candidiasis [Recovered/Resolved]
  - Hypertension [Recovered/Resolved]
  - Cystitis haemorrhagic [Recovered/Resolved]
  - Left ventricular dysfunction [Recovered/Resolved]
  - Febrile neutropenia [Recovered/Resolved]
